FAERS Safety Report 6862145-6 (Version None)
Quarter: 2010Q3

REPORT INFORMATION
  Report Type: 
  Country: None (occurrence: None)
  Receive Date: 20100721
  Receipt Date: 20100710
  Transmission Date: 20110219
  Serious: Yes (Hospitalization)
  Sender: FDA-Public Use
  Company Number: US-JNJFOC-20100703543

PATIENT
  Sex: Female
  Weight: 95.26 kg

DRUGS (2)
  1. SIMPONI [Suspect]
     Indication: RHEUMATOID ARTHRITIS
     Route: 058
  2. METHOTREXATE [Concomitant]
     Indication: RHEUMATOID ARTHRITIS

REACTIONS (10)
  - ANAEMIA [None]
  - COLITIS [None]
  - DEHYDRATION [None]
  - GASTRIC ULCER [None]
  - GASTRITIS [None]
  - HAEMORRHOIDS [None]
  - HIATUS HERNIA [None]
  - INAPPROPRIATE SCHEDULE OF DRUG ADMINISTRATION [None]
  - INCORRECT STORAGE OF DRUG [None]
  - POLYP [None]
